FAERS Safety Report 5515561-9 (Version None)
Quarter: 2007Q4

REPORT INFORMATION
  Report Type: 
  Country: None (occurrence: None)
  Receive Date: 20071113
  Receipt Date: 20070605
  Transmission Date: 20080405
  Serious: Yes (Other)
  Sender: FDA-Public Use
  Company Number: A0654301A

PATIENT
  Age: 66 Year
  Sex: Female

DRUGS (7)
  1. COREG [Suspect]
     Indication: HYPERTENSION
     Dosage: 25MG TWICE PER DAY
     Route: 048
     Dates: start: 20070501
  2. RIFAMPIN [Suspect]
     Indication: TUBERCULOSIS
     Dosage: 600MG PER DAY
     Route: 048
     Dates: start: 20070520
  3. MIDODRINE [Concomitant]
  4. INH [Concomitant]
  5. ASPIRIN [Concomitant]
  6. LASIX [Concomitant]
  7. ALLEGRA [Concomitant]

REACTIONS (4)
  - BLOOD URIC ACID INCREASED [None]
  - HAEMATOCRIT DECREASED [None]
  - HAEMOGLOBIN DECREASED [None]
  - HEPATIC ENZYME INCREASED [None]
